FAERS Safety Report 24697042 (Version 4)
Quarter: 2025Q4

REPORT INFORMATION
  Report Type: Report from Study
  Country: US (occurrence: US)
  Receive Date: 20241204
  Receipt Date: 20251217
  Transmission Date: 20260118
  Serious: Yes (Other)
  Sender: PFIZER
  Company Number: US-PFIZER INC-202400057473

PATIENT
  Age: 64 Year
  Sex: Female
  Weight: 100.24 kg

DRUGS (4)
  1. PREMARIN [Suspect]
     Active Substance: ESTROGENS, CONJUGATED
     Indication: Hysterectomy
     Dosage: PRESCRIBED TO TAKE ONCE A DAY, .625MG
     Dates: start: 1988
  2. PREMARIN [Suspect]
     Active Substance: ESTROGENS, CONJUGATED
     Indication: Hot flush
     Dosage: TAKING 1 EVERY OTHER DAY
     Dates: start: 2024
  3. PREMARIN [Suspect]
     Active Substance: ESTROGENS, CONJUGATED
     Dosage: TAKE 1 TABLET (0.625 MG) BY MOUTH DAILY
     Route: 048
  4. ESTROGENS [Concomitant]
     Active Substance: ESTROGENS
     Indication: Hysterectomy
     Dosage: UNK

REACTIONS (2)
  - Knee operation [Unknown]
  - Intentional product misuse [Unknown]

NARRATIVE: CASE EVENT DATE: 20240101
